FAERS Safety Report 6901481-1 (Version None)
Quarter: 2010Q3

REPORT INFORMATION
  Report Type: 
  Country: None (occurrence: None)
  Receive Date: 20100803
  Receipt Date: 20080202
  Transmission Date: 20110219
  Serious: No
  Sender: FDA-Public Use
  Company Number: US-PFIZER INC-2008012087

PATIENT
  Sex: Male
  Weight: 70.3 kg

DRUGS (2)
  1. LYRICA [Suspect]
     Indication: NERVE COMPRESSION
     Dates: start: 20071101, end: 20080130
  2. VICODIN [Concomitant]

REACTIONS (7)
  - ABDOMINAL DISCOMFORT [None]
  - DIZZINESS [None]
  - FEELING ABNORMAL [None]
  - MALAISE [None]
  - PRESYNCOPE [None]
  - SOMNOLENCE [None]
  - VISION BLURRED [None]
